FAERS Safety Report 13600957 (Version 1)
Quarter: 2017Q2

REPORT INFORMATION
  Report Type: Spontaneous
  Country: NO (occurrence: NO)
  Receive Date: 20170601
  Receipt Date: 20170601
  Transmission Date: 20170830
  Serious: Yes (Death, Hospitalization, Other)
  Sender: FDA-Public Use
  Company Number: NO-ROCHE-1941812

PATIENT
  Sex: Female

DRUGS (3)
  1. LOPERAMIDE [Suspect]
     Active Substance: LOPERAMIDE
     Indication: PRODUCT USED FOR UNKNOWN INDICATION
     Route: 065
  2. CRIZOTINIB [Suspect]
     Active Substance: CRIZOTINIB
     Indication: NON-SMALL CELL LUNG CANCER
     Route: 065
  3. ALECENSA [Suspect]
     Active Substance: ALECTINIB HYDROCHLORIDE
     Indication: NON-SMALL CELL LUNG CANCER
     Route: 065

REACTIONS (4)
  - Constipation [Fatal]
  - Ileus [Fatal]
  - Diarrhoea [Unknown]
  - General physical health deterioration [Unknown]
